FAERS Safety Report 23670206 (Version 1)
Quarter: 2024Q1

REPORT INFORMATION
  Report Type: Spontaneous
  Country: US (occurrence: US)
  Receive Date: 20240325
  Receipt Date: 20240325
  Transmission Date: 20240410
  Serious: No
  Sender: FDA-Public Use
  Company Number: US-BRISTOL-MYERS SQUIBB COMPANY-2024-047769

PATIENT
  Age: 85 Year
  Sex: Female
  Weight: 49.44 kg

DRUGS (1)
  1. REVLIMID [Suspect]
     Active Substance: LENALIDOMIDE
     Indication: Monoclonal gammopathy
     Dosage: DAILY FOR 21 DAYS ON AND 7 DAYS OFF
     Route: 048

REACTIONS (3)
  - Rash pruritic [Recovering/Resolving]
  - Vomiting [Recovering/Resolving]
  - Off label use [Unknown]
